FAERS Safety Report 6253263-4 (Version None)
Quarter: 2009Q3

REPORT INFORMATION
  Report Type: 
  Country: None (occurrence: None)
  Receive Date: 20090701
  Receipt Date: 20090629
  Transmission Date: 20100115
  Serious: Yes (Hospitalization)
  Sender: FDA-Public Use
  Company Number: DEWYE550812APR06

PATIENT
  Sex: Male
  Weight: 87 kg

DRUGS (1)
  1. GEMTUZUMAB OZOGAMICIN [Suspect]
     Indication: ACUTE MYELOID LEUKAEMIA
     Dosage: 12 MG
     Dates: start: 20041209, end: 20041209

REACTIONS (2)
  - BRONCHOPULMONARY ASPERGILLOSIS [None]
  - FUNGAL INFECTION [None]
